FAERS Safety Report 20086365 (Version 5)
Quarter: 2022Q2

REPORT INFORMATION
  Report Type: Spontaneous
  Country: CA (occurrence: CA)
  Receive Date: 20211118
  Receipt Date: 20220603
  Transmission Date: 20220720
  Serious: Yes (Hospitalization, Other)
  Sender: FDA-Public Use
  Company Number: CA-GLAXOSMITHKLINE-CA2021AMR167243

PATIENT

DRUGS (4)
  1. BENLYSTA [Suspect]
     Active Substance: BELIMUMAB
     Indication: Systemic lupus erythematosus
     Dosage: 870 MG
     Route: 042
  2. BENLYSTA [Suspect]
     Active Substance: BELIMUMAB
     Dosage: UNK
  3. BENLYSTA [Suspect]
     Active Substance: BELIMUMAB
     Dosage: 870 MG
     Route: 042
  4. BENLYSTA [Suspect]
     Active Substance: BELIMUMAB
     Dosage: 870 MG
     Route: 042

REACTIONS (7)
  - Wound complication [Unknown]
  - Pain in extremity [Unknown]
  - Systemic lupus erythematosus [Unknown]
  - Pericarditis [Unknown]
  - Insomnia [Unknown]
  - Mobility decreased [Unknown]
  - Wound haemorrhage [Unknown]
